FAERS Safety Report 5023404-5 (Version None)
Quarter: 2006Q2

REPORT INFORMATION
  Report Type: 
  Country: None (occurrence: None)
  Receive Date: 20060612
  Receipt Date: 20060531
  Transmission Date: 20061013
  Serious: Yes (Other)
  Sender: FDA-Public Use
  Company Number: US-AVENTIS-200614925US

PATIENT
  Sex: Female

DRUGS (2)
  1. LOVENOX [Suspect]
     Indication: DEEP VEIN THROMBOSIS
     Dates: start: 20051130, end: 20060203
  2. COUMADIN [Concomitant]
     Dosage: DOSE: UNK
     Dates: start: 20060117

REACTIONS (4)
  - HAEMATOCRIT DECREASED [None]
  - HAEMOGLOBIN DECREASED [None]
  - PLATELET COUNT INCREASED [None]
  - SWELLING [None]
